FAERS Safety Report 17018383 (Version 18)
Quarter: 2021Q2

REPORT INFORMATION
  Report Type: Report from Study
  Country: US (occurrence: US)
  Receive Date: 20191111
  Receipt Date: 20210604
  Transmission Date: 20210716
  Serious: Yes (Hospitalization, Other)
  Sender: FDA-Public Use
  Company Number: NVSC2019US026733

PATIENT
  Age: 75 Year
  Sex: Female
  Weight: 63.49 kg

DRUGS (9)
  1. TREPROSTINIL. [Suspect]
     Active Substance: TREPROSTINIL
     Dosage: 15 NG/KG/MIN CONTINUOUS
     Route: 042
  2. ADEMPAS [Concomitant]
     Active Substance: RIOCIGUAT
     Indication: PRODUCT USED FOR UNKNOWN INDICATION
     Dosage: UNK
     Route: 065
  3. TREPROSTINIL. [Suspect]
     Active Substance: TREPROSTINIL
     Dosage: 17 NG/KG/MIN CONTINUOUS
     Route: 042
  4. REMODULIN [Concomitant]
     Active Substance: TREPROSTINIL
     Indication: PRODUCT USED FOR UNKNOWN INDICATION
     Dosage: UNK
     Route: 065
  5. TREPROSTINIL. [Suspect]
     Active Substance: TREPROSTINIL
     Dosage: 19 NG/KG/MIN, CONTINUOUS
     Route: 042
  6. TREPROSTINIL. [Suspect]
     Active Substance: TREPROSTINIL
     Dosage: 19 NG/KG/MIN, CONTINUOUS
     Route: 042
     Dates: start: 20200909
  7. TREPROSTINIL. [Suspect]
     Active Substance: TREPROSTINIL
     Indication: PULMONARY ARTERIAL HYPERTENSION
     Dosage: 12 NG/KG/MIN CONTINUOUS
     Route: 042
     Dates: start: 20191030
  8. TREPROSTINIL. [Suspect]
     Active Substance: TREPROSTINIL
     Dosage: 17 NG/KG/MIN, CONTINUOUS
     Route: 042
  9. TREPROSTINIL. [Suspect]
     Active Substance: TREPROSTINIL
     Dosage: 19 NG/KG/MIN, CONTINUOUS
     Route: 042

REACTIONS (28)
  - Chest discomfort [Unknown]
  - Muscle spasms [Unknown]
  - Pain in extremity [Unknown]
  - Dizziness [Unknown]
  - COVID-19 [Recovered/Resolved]
  - Pneumonia [Unknown]
  - Arthralgia [Unknown]
  - Nausea [Recovered/Resolved]
  - Nausea [Unknown]
  - Asthenia [Unknown]
  - Vomiting [Unknown]
  - Insomnia [Unknown]
  - Diarrhoea [Unknown]
  - Headache [Recovered/Resolved]
  - Chills [Unknown]
  - Oxygen saturation decreased [Unknown]
  - Flank pain [Recovered/Resolved]
  - Cough [Unknown]
  - Blood iron decreased [Unknown]
  - Hypoxia [Unknown]
  - Malaise [Unknown]
  - Nephrolithiasis [Unknown]
  - Rash erythematous [Unknown]
  - Acute respiratory failure [Unknown]
  - Cellulitis [Unknown]
  - Pyrexia [Recovered/Resolved]
  - Folliculitis [Unknown]
  - Fatigue [Unknown]

NARRATIVE: CASE EVENT DATE: 20200509
